FAERS Safety Report 8806742 (Version 1)
Quarter: 2012Q4

REPORT INFORMATION
  Report Type: 
  Country: BR (occurrence: BR)
  Receive Date: 20120925
  Receipt Date: 20120925
  Transmission Date: 20130627
  Serious: Yes (Other)
  Sender: FDA-Public Use
  Company Number: PHHY2012BR082105

PATIENT
  Age: 65 Year
  Sex: Male

DRUGS (5)
  1. LISINOPRIL [Suspect]
  2. AMLODIPINE [Suspect]
  3. CLOPIDOGREL [Suspect]
  4. ISOSORBIDE MONONITRATE [Concomitant]
  5. AAS [Concomitant]

REACTIONS (3)
  - Blood glucose increased [Recovering/Resolving]
  - Dyspnoea [Recovering/Resolving]
  - Asthenia [Recovering/Resolving]
